FAERS Safety Report 24565866 (Version 1)
Quarter: 2024Q4

REPORT INFORMATION
  Report Type: Spontaneous
  Country: US (occurrence: US)
  Receive Date: 20241030
  Receipt Date: 20241030
  Transmission Date: 20250114
  Serious: No
  Sender: JOHNSON AND JOHNSON
  Company Number: US-JNJFOC-20241074922

PATIENT
  Sex: Female

DRUGS (1)
  1. SPRAVATO [Suspect]
     Active Substance: ESKETAMINE
     Indication: Major depression
     Dosage: PATIENT HAD BEEN GETTING SPRAVATO FROM THIS PHARMACY SINCE AUG-2024 FOR MDD.

REACTIONS (2)
  - Product packaging quantity issue [Unknown]
  - Underdose [Unknown]
